FAERS Safety Report 4904322-7 (Version None)
Quarter: 2006Q1

REPORT INFORMATION
  Report Type: 
  Country: None (occurrence: None)
  Receive Date: 20060208
  Receipt Date: 20050823
  Transmission Date: 20060701
  Serious: No
  Sender: FDA-Public Use
  Company Number: US-GLAXOSMITHKLINE-A0571456A

PATIENT
  Age: 29 Year
  Sex: Male

DRUGS (4)
  1. PAROXETINE HCL [Suspect]
     Route: 048
     Dates: start: 20000101
  2. BUPROPION HYDROCHLORIDE [Suspect]
     Dosage: 150MG TWICE PER DAY
     Route: 048
     Dates: start: 20050810
  3. LAMICTAL [Concomitant]
  4. ZYPREXA [Concomitant]

REACTIONS (5)
  - ABNORMAL DREAMS [None]
  - ANGER [None]
  - DRUG WITHDRAWAL SYNDROME [None]
  - FATIGUE [None]
  - THINKING ABNORMAL [None]
